FAERS Safety Report 10335128 (Version 1)
Quarter: 2014Q3

REPORT INFORMATION
  Report Type: Spontaneous
  Country: US (occurrence: US)
  Receive Date: 20140723
  Receipt Date: 20140723
  Transmission Date: 20150326
  Serious: No
  Sender: FDA-Public Use
  Company Number: US-UNITED THERAPEUTICS-UTC-044616

PATIENT
  Age: 55 Year
  Sex: Female

DRUGS (1)
  1. TYVASO [Suspect]
     Active Substance: TREPROSTINIL
     Dates: start: 20121022, end: 20140206

REACTIONS (2)
  - Therapy cessation [Unknown]
  - Malaise [Unknown]

NARRATIVE: CASE EVENT DATE: 20121022
